FAERS Safety Report 8369344-5 (Version None)
Quarter: 2012Q2

REPORT INFORMATION
  Report Type: 
  Country: None (occurrence: None)
  Receive Date: 20120518
  Receipt Date: 20120514
  Transmission Date: 20120825
  Serious: Yes (Death)
  Sender: FDA-Public Use
  Company Number: PHHY2012EG042062

PATIENT
  Age: 19 Year
  Sex: Male

DRUGS (1)
  1. GLEEVEC [Suspect]
     Indication: SYNOVIAL SARCOMA

REACTIONS (1)
  - DEATH [None]
